FAERS Safety Report 23250340 (Version 1)
Quarter: 2023Q4

REPORT INFORMATION
  Report Type: Report from Study
  Country: HK (occurrence: None)
  Receive Date: 20231201
  Receipt Date: 20231201
  Transmission Date: 20240110
  Serious: Yes (Hospitalization)
  Sender: FDA-Public Use
  Company Number: 2023A267238

PATIENT
  Age: 71 Year
  Sex: Female
  Weight: 49.7 kg

DRUGS (6)
  1. CILGAVIMAB\TIXAGEVIMAB [Suspect]
     Active Substance: CILGAVIMAB\TIXAGEVIMAB
     Indication: Prophylaxis
     Route: 030
     Dates: start: 20221115, end: 20221115
  2. ZOPICLONE [Concomitant]
     Active Substance: ZOPICLONE
     Indication: Symptomatic treatment
     Route: 048
     Dates: start: 20220221
  3. VALACYCLOVIR HCL TABLET [Concomitant]
     Indication: Symptomatic treatment
     Route: 048
     Dates: start: 20220121
  4. FAMOTIDINE [Concomitant]
     Active Substance: FAMOTIDINE
     Indication: Prophylaxis
     Route: 048
     Dates: start: 20220207
  5. MAGNESIUM CARBONATE/CALCIUM CARBONATE/CLINOPTILOLITE [Concomitant]
     Indication: Symptomatic treatment
     Route: 048
     Dates: start: 20220114
  6. BENZALKONIUM CHLORIDE/TIMOLOL MALEATE [Concomitant]
     Indication: Symptomatic treatment
     Dosage: 2 DROPS
     Route: 047
     Dates: start: 20220429

REACTIONS (2)
  - Pneumonia [Recovered/Resolved]
  - Neutropenic sepsis [Recovered/Resolved]

NARRATIVE: CASE EVENT DATE: 20231013
